FAERS Safety Report 8518014-9 (Version None)
Quarter: 2012Q3

REPORT INFORMATION
  Report Type: 
  Country: None (occurrence: None)
  Receive Date: 20120718
  Receipt Date: 20110803
  Transmission Date: 20120928
  Serious: No
  Sender: FDA-Public Use
  Company Number: US-BRISTOL-MYERS SQUIBB COMPANY-15944812

PATIENT
  Age: 83 Year
  Sex: Male
  Weight: 113 kg

DRUGS (1)
  1. COUMADIN [Suspect]
     Dosage: INITIAL DOSE 5MG DECREASED TO 2.5MG.

REACTIONS (2)
  - EPISTAXIS [None]
  - PROTHROMBIN TIME RATIO INCREASED [None]
